FAERS Safety Report 8927822 (Version 2)
Quarter: 2013Q1

REPORT INFORMATION
  Report Type: Spontaneous
  Country: DE (occurrence: DE)
  Receive Date: 20121127
  Receipt Date: 20130110
  Transmission Date: 20140127
  Serious: Yes (Other)
  Sender: FDA-Public Use
  Company Number: DE-AMGEN-DEUSP2012075436

PATIENT
  Age: 73 Year
  Sex: Female
  Weight: 65 kg

DRUGS (2)
  1. PROLIA [Suspect]
     Indication: OSTEOPOROSIS
     Dosage: 60 MG, ONE TIME DOSE
     Route: 058
     Dates: start: 201211
  2. DEKRISTOL [Concomitant]
     Indication: OSTEOPOROSIS
     Dosage: 20000 UNK, UNK
     Route: 048
     Dates: start: 20120414, end: 20120917

REACTIONS (2)
  - Type III immune complex mediated reaction [Unknown]
  - Chills [Recovered/Resolved]
